FAERS Safety Report 7532601-6 (Version None)
Quarter: 2011Q2

REPORT INFORMATION
  Report Type: 
  Country: None (occurrence: None)
  Receive Date: 20110608
  Receipt Date: 20110603
  Transmission Date: 20111010
  Serious: Yes (Hospitalization)
  Sender: FDA-Public Use
  Company Number: PHHO2011US09671

PATIENT
  Sex: Male
  Weight: 84 kg

DRUGS (5)
  1. PREDNISONE [Suspect]
     Indication: GRAFT VERSUS HOST DISEASE
     Dosage: 35 MG, UNK
     Dates: start: 20110510
  2. TASIGNA [Suspect]
     Indication: ACUTE LYMPHOCYTIC LEUKAEMIA
     Dosage: 400 MG, QD
     Route: 048
     Dates: start: 20101105
  3. BUPROPION HCL [Suspect]
     Indication: DEPRESSION
     Dosage: 100 MG, UNK
     Dates: start: 20110525, end: 20110606
  4. POSACONAZOLE [Concomitant]
     Indication: ANTIFUNGAL PROPHYLAXIS
     Dosage: 5 ML, TID
     Dates: start: 20110503
  5. CITALOPRAM HYDROBROMIDE [Suspect]
     Indication: DEPRESSION
     Dosage: 10 MG (TAPERING FROM 40 MG)
     Dates: start: 20110525

REACTIONS (1)
  - GRAND MAL CONVULSION [None]
